FAERS Safety Report 25808381 (Version 1)
Quarter: 2025Q3

REPORT INFORMATION
  Report Type: Spontaneous
  Country: EU (occurrence: EU)
  Receive Date: 20250916
  Receipt Date: 20250916
  Transmission Date: 20251021
  Serious: Yes (Death)
  Sender: MYLAN
  Company Number: None

PATIENT
  Age: 91 Year
  Sex: Male

DRUGS (1)
  1. NOREPINEPHRINE [Suspect]
     Active Substance: NOREPINEPHRINE
     Indication: Product used for unknown indication

REACTIONS (3)
  - Death [Fatal]
  - Product preparation error [Fatal]
  - Accidental overdose [Not Recovered/Not Resolved]

NARRATIVE: CASE EVENT DATE: 20250501
